FAERS Safety Report 5417035-2 (Version None)
Quarter: 2007Q3

REPORT INFORMATION
  Report Type: 
  Country: None (occurrence: None)
  Receive Date: 20070816
  Receipt Date: 20070807
  Transmission Date: 20080115
  Serious: Yes (Disabling)
  Sender: FDA-Public Use
  Company Number: JP-ASTRAZENECA-2007AP04451

PATIENT
  Age: 26810 Day
  Sex: Male
  Weight: 64.8 kg

DRUGS (7)
  1. NAROPIN [Suspect]
     Indication: EPIDURAL ANAESTHESIA
     Route: 008
     Dates: start: 20070706, end: 20070709
  2. NAROPIN [Suspect]
     Indication: POSTOPERATIVE ANALGESIA
     Route: 008
     Dates: start: 20070706, end: 20070709
  3. MARCAINE HYDROCHLORIDE PRESERVATIVE FREE [Suspect]
     Indication: SPINAL ANAESTHESIA
     Route: 037
     Dates: start: 20070706, end: 20070706
  4. FENTANYL [Suspect]
     Indication: POSTOPERATIVE ANALGESIA
     Route: 008
     Dates: start: 20070706, end: 20070709
  5. ULTIVA [Concomitant]
     Indication: ANAESTHESIA
     Route: 042
     Dates: start: 20070706
  6. DIPRIVAN [Concomitant]
     Indication: ANAESTHESIA
     Route: 042
     Dates: start: 20070706
  7. EPHEDRIN [Concomitant]
     Route: 042
     Dates: start: 20070706

REACTIONS (1)
  - MONOPARESIS [None]
